FAERS Safety Report 6827607-6 (Version None)
Quarter: 2010Q3

REPORT INFORMATION
  Report Type: 
  Country: None (occurrence: None)
  Receive Date: 20100709
  Receipt Date: 20070122
  Transmission Date: 20110219
  Serious: No
  Sender: FDA-Public Use
  Company Number: US-PFIZER INC-2007006455

PATIENT
  Sex: Female
  Weight: 90.72 kg

DRUGS (6)
  1. CHANTIX [Suspect]
     Indication: SMOKING CESSATION THERAPY
     Dates: start: 20070119
  2. TOPAMAX [Concomitant]
  3. LEXAPRO [Concomitant]
  4. STRATTERA [Concomitant]
  5. NEXIUM [Concomitant]
  6. GLUCOPHAGE [Concomitant]

REACTIONS (2)
  - HEADACHE [None]
  - PALPITATIONS [None]
